FAERS Safety Report 10102631 (Version 1)
Quarter: 2014Q2

REPORT INFORMATION
  Report Type: Report from Study
  Country: US (occurrence: US)
  Receive Date: 20140424
  Receipt Date: 20140424
  Transmission Date: 20141212
  Serious: No
  Sender: FDA-Public Use
  Company Number: US-BAXTER-2014BAX014668

PATIENT
  Age: 58 Year
  Sex: Female
  Weight: 90.8 kg

DRUGS (2)
  1. GAMMAGARD LIQUID [Suspect]
     Indication: SELECTIVE IGG SUBCLASS DEFICIENCY
     Dosage: 1-10 ML VIAL, 4-1 ML VIALS; INFUSED OVER A DURATION OF 2 HOURS
     Route: 058
     Dates: start: 20140304, end: 20140304
  2. BENADRYL [Concomitant]
     Indication: PREMEDICATION
     Dosage: BEFORE GGL INFUSION
     Route: 048
     Dates: start: 20140304

REACTIONS (4)
  - Infusion site erythema [Recovering/Resolving]
  - Infusion site swelling [Recovering/Resolving]
  - Joint effusion [Recovered/Resolved]
  - Blood potassium decreased [Not Recovered/Not Resolved]
